FAERS Safety Report 14900027 (Version 1)
Quarter: 2018Q2

REPORT INFORMATION
  Report Type: Spontaneous
  Country: FR (occurrence: FR)
  Receive Date: 20180516
  Receipt Date: 20180516
  Transmission Date: 20180711
  Serious: Yes (Other)
  Sender: FDA-Public Use
  Company Number: FR-MERCK KGAA-2047869

PATIENT
  Sex: Female

DRUGS (1)
  1. NOVOTHYROX [Suspect]
     Active Substance: LEVOTHYROXINE SODIUM
     Indication: THYROID DISORDER

REACTIONS (18)
  - Vertigo [None]
  - Weight increased [None]
  - Oedema peripheral [None]
  - Malaise [None]
  - Cardiac failure [None]
  - Mood swings [None]
  - Asocial behaviour [None]
  - Alanine aminotransferase increased [None]
  - Glycosylated haemoglobin increased [None]
  - Anger [None]
  - Muscle spasms [None]
  - Loss of personal independence in daily activities [None]
  - Vision blurred [None]
  - Aggression [None]
  - Gait disturbance [None]
  - Visual impairment [None]
  - Headache [None]
  - Dyspnoea [None]
